FAERS Safety Report 11967186 (Version 2)
Quarter: 2016Q1

REPORT INFORMATION
  Report Type: Spontaneous
  Country: US (occurrence: US)
  Receive Date: 20160127
  Receipt Date: 20160203
  Transmission Date: 20160526
  Serious: Yes (Other)
  Sender: FDA-Public Use
  Company Number: US-BAYER-2016-014688

PATIENT
  Age: 48 Year
  Sex: Female

DRUGS (4)
  1. MIRENA [Suspect]
     Active Substance: LEVONORGESTREL
     Dosage: 20 MCG/24HR, CONT
     Route: 015
  2. PROMETRIUM [Suspect]
     Active Substance: PROGESTERONE
     Indication: GENITAL HAEMORRHAGE
     Dosage: UNK
     Dates: start: 201512
  3. MIRENA [Suspect]
     Active Substance: LEVONORGESTREL
     Dosage: 20 MCG/24HR, CONT
     Route: 015
  4. MIRENA [Suspect]
     Active Substance: LEVONORGESTREL
     Dosage: 20 MCG/24HR, CONT
     Route: 015
     Dates: start: 2014

REACTIONS (4)
  - Amenorrhoea [Recovered/Resolved]
  - Amenorrhoea [None]
  - Genital haemorrhage [Recovered/Resolved]
  - Product quality issue [None]

NARRATIVE: CASE EVENT DATE: 201504
